FAERS Safety Report 9132885 (Version 2)
Quarter: 2013Q2

REPORT INFORMATION
  Report Type: Spontaneous
  Country: JP (occurrence: JP)
  Receive Date: 20130301
  Receipt Date: 20130424
  Transmission Date: 20140414
  Serious: No
  Sender: FDA-Public Use
  Company Number: JP-ELI_LILLY_AND_COMPANY-JP201211005991

PATIENT
  Age: 91 Year
  Sex: Female
  Weight: 37 kg

DRUGS (4)
  1. FORTEO [Suspect]
     Indication: OSTEOPOROSIS
     Dosage: 20 UG, QD
     Route: 058
     Dates: start: 20121114, end: 20121118
  2. TRIMEBUTINE [Concomitant]
     Dosage: 100 MG, TID
     Route: 048
     Dates: start: 20121108, end: 20121127
  3. CEPHADOL [Concomitant]
     Dosage: 25 MG, TID
     Route: 048
     Dates: start: 20121108, end: 20121127
  4. PARIET [Concomitant]
     Dosage: 10 MG, EACH EVENING
     Route: 048
     Dates: start: 20121108, end: 20121127

REACTIONS (1)
  - Pyrexia [Recovered/Resolved]
